FAERS Safety Report 18827754 (Version 2)
Quarter: 2021Q1

REPORT INFORMATION
  Report Type: Report from Study
  Country: IT (occurrence: IT)
  Receive Date: 20210202
  Receipt Date: 20210209
  Transmission Date: 20210419
  Serious: Yes (Hospitalization)
  Sender: FDA-Public Use
  Company Number: IT-AMGEN-ITACT2021015696

PATIENT
  Age: 83 Year
  Sex: Male
  Weight: 78.75 kg

DRUGS (20)
  1. DEXAMETHASONE. [Suspect]
     Active Substance: DEXAMETHASONE
     Indication: PRODUCT USED FOR UNKNOWN INDICATION
     Dosage: 8?20 MILLIGRAM
     Route: 042
     Dates: start: 20210112
  2. AVODART [Concomitant]
     Active Substance: DUTASTERIDE
     Dosage: 1 UNK
     Route: 048
     Dates: start: 20210114
  3. BOTAM [Concomitant]
     Active Substance: TAMSULOSIN HYDROCHLORIDE
     Dosage: 1 UNK
     Route: 048
     Dates: start: 20200825
  4. GLAZIDIM [Concomitant]
     Active Substance: CEFTAZIDIME
     Dosage: 2 GRAM
     Route: 042
     Dates: start: 20210112
  5. BACTRIM [Concomitant]
     Active Substance: SULFAMETHOXAZOLE\TRIMETHOPRIM
     Dosage: 1 UNK
     Route: 048
     Dates: start: 20210113
  6. NYSTATIN. [Concomitant]
     Active Substance: NYSTATIN
     Dosage: 1 UNK
     Route: 061
     Dates: start: 20210112
  7. BICARBONATE [Concomitant]
     Active Substance: SODIUM BICARBONATE
     Dosage: 1 UNK
     Route: 061
     Dates: start: 20210112
  8. LASIX [Concomitant]
     Active Substance: FUROSEMIDE
     Dosage: 1 UNK
     Route: 042
     Dates: start: 20210112
  9. LAMIVUDINE. [Concomitant]
     Active Substance: LAMIVUDINE
     Dosage: 100 MILLIGRAM
     Route: 048
     Dates: start: 20190415
  10. PERFALGAN [Concomitant]
     Active Substance: ACETAMINOPHEN
     Dosage: 1000 MILLIGRAM
     Route: 042
     Dates: start: 20210112, end: 20210112
  11. PARVATI [Concomitant]
     Dosage: 1 UNK
     Route: 048
     Dates: start: 20210111
  12. CYCLOPHOSPHAMIDE. [Suspect]
     Active Substance: CYCLOPHOSPHAMIDE
     Indication: PRODUCT USED FOR UNKNOWN INDICATION
     Dosage: 388 MILLIGRAM
     Route: 042
     Dates: start: 20210112
  13. HYDROXYUREA. [Suspect]
     Active Substance: HYDROXYUREA
     Indication: PRODUCT USED FOR UNKNOWN INDICATION
     Dosage: 1500 MILLIGRAM
     Route: 048
     Dates: start: 20210116
  14. KYTRIL [Concomitant]
     Active Substance: GRANISETRON HYDROCHLORIDE
     Dosage: 3 MILLIGRAM
     Route: 042
     Dates: start: 20210112, end: 20210114
  15. BLINATUMOMAB [Suspect]
     Active Substance: BLINATUMOMAB
     Indication: ACUTE LYMPHOCYTIC LEUKAEMIA
     Dosage: 250 MICROGRAM
     Route: 058
     Dates: start: 20210118
  16. ACICLOVIR [Concomitant]
     Active Substance: ACYCLOVIR
     Dosage: 400 MILLIGRAM
     Route: 048
     Dates: start: 20210113
  17. LUVION [CANRENOIC ACID] [Concomitant]
     Active Substance: CANRENOIC ACID
     Dosage: 200 MILLIGRAM
     Route: 042
     Dates: start: 20210116
  18. POSACONAZOLE [Concomitant]
     Active Substance: POSACONAZOLE
     Dosage: 300 MILLIGRAM
     Route: 048
     Dates: start: 20210113
  19. ATORVASTATINE [ATORVASTATIN] [Concomitant]
     Active Substance: ATORVASTATIN
     Dosage: 10 MILLIGRAM
     Route: 048
     Dates: start: 2019
  20. FASTURTEC [Concomitant]
     Active Substance: RASBURICASE
     Dosage: 7.5 MILLIGRAM
     Route: 042
     Dates: start: 20210112, end: 20210114

REACTIONS (2)
  - Neutropenia [Recovered/Resolved]
  - Thrombocytopenia [Recovered/Resolved]

NARRATIVE: CASE EVENT DATE: 20210129
